FAERS Safety Report 17689664 (Version 1)
Quarter: 2020Q2

REPORT INFORMATION
  Report Type: Spontaneous
  Country: US (occurrence: US)
  Receive Date: 20200420
  Receipt Date: 20200420
  Transmission Date: 20200714
  Serious: No
  Sender: FDA-Public Use
  Company Number: None

PATIENT
  Age: 52 Year
  Sex: Male

DRUGS (1)
  1. CAPECITABINE TAB 500MG [Suspect]
     Active Substance: CAPECITABINE
     Route: 048
     Dates: start: 20200325

REACTIONS (3)
  - Palmar-plantar erythrodysaesthesia syndrome [None]
  - Impaired work ability [None]
  - Pain [None]

NARRATIVE: CASE EVENT DATE: 20200420
